FAERS Safety Report 8059126-6 (Version None)
Quarter: 2012Q1

REPORT INFORMATION
  Report Type: 
  Country: None (occurrence: None)
  Receive Date: 20120120
  Receipt Date: 20120117
  Transmission Date: 20120608
  Serious: Yes (Hospitalization)
  Sender: FDA-Public Use
  Company Number: FR-PFIZER INC-2012013926

PATIENT
  Age: 65 Year
  Sex: Female

DRUGS (2)
  1. VARENICLINE TARTRATE [Suspect]
     Dosage: 0.5 MG DAILY IN THE MORNING
     Dates: start: 20110909
  2. SPIRIVA [Concomitant]
     Dosage: UNK

REACTIONS (7)
  - GASTROINTESTINAL INFECTION [None]
  - LETHARGY [None]
  - CYSTITIS [None]
  - SOMNOLENCE [None]
  - NAUSEA [None]
  - VOMITING [None]
  - INSOMNIA [None]
